FAERS Safety Report 10263429 (Version 2)
Quarter: 2014Q2

REPORT INFORMATION
  Report Type: Report from Study
  Country: JP (occurrence: JP)
  Receive Date: 20140626
  Receipt Date: 20140626
  Transmission Date: 20141212
  Serious: Yes (Death, Hospitalization, Other)
  Sender: FDA-Public Use
  Company Number: JP-TAKEDA-2014JNJ000479

PATIENT
  Sex: 0

DRUGS (5)
  1. VELCADE [Suspect]
     Indication: PLASMA CELL MYELOMA
     Dosage: 1.3 MG/M2, UNK
     Route: 058
     Dates: start: 20130702, end: 20130715
  2. LOXONIN [Suspect]
     Indication: PRODUCT USED FOR UNKNOWN INDICATION
     Dosage: UNK MG, UNK
     Route: 065
     Dates: start: 20130531
  3. LOXONIN [Suspect]
     Dosage: 60 MG, UNK
     Route: 065
     Dates: start: 20130603, end: 20130609
  4. LENADEX [Suspect]
     Indication: PLASMA CELL MYELOMA
     Dosage: 20 MG, QD
     Route: 048
     Dates: start: 20130702, end: 20130703
  5. LANSOPRAZOLE [Concomitant]
     Dosage: 15 MG, UNK
     Route: 048
     Dates: start: 20130618, end: 20130708

REACTIONS (5)
  - Plasma cell myeloma [Fatal]
  - Gastric ulcer haemorrhage [Recovering/Resolving]
  - Diverticulitis [Recovered/Resolved with Sequelae]
  - Renal failure [Recovered/Resolved with Sequelae]
  - Hiccups [Recovering/Resolving]
